FAERS Safety Report 12626945 (Version 3)
Quarter: 2016Q3

REPORT INFORMATION
  Report Type: Spontaneous
  Country: US (occurrence: US)
  Receive Date: 20160805
  Receipt Date: 20160909
  Transmission Date: 20161109
  Serious: Yes (Hospitalization, Other)
  Sender: FDA-Public Use
  Company Number: US-SAOL THERAPEUTICS-2016SAO00320

PATIENT
  Age: 32 Year
  Sex: Male

DRUGS (6)
  1. LIORESAL [Suspect]
     Active Substance: BACLOFEN
     Indication: MUSCLE SPASTICITY
     Dosage: UNK
     Dates: end: 20160713
  2. LIORESAL [Suspect]
     Active Substance: BACLOFEN
     Dosage: 498.2 ?G, \DAY
     Route: 037
     Dates: start: 20160720
  3. LIORESAL [Suspect]
     Active Substance: BACLOFEN
     Dosage: 360 ?G, \DAY
     Route: 037
     Dates: start: 201607, end: 20160810
  4. LIORESAL [Suspect]
     Active Substance: BACLOFEN
     Indication: SPINAL CORD INJURY
     Dosage: 382.3 ?G, \DAY
     Route: 037
     Dates: start: 20160713, end: 20160720
  5. LIORESAL [Suspect]
     Active Substance: BACLOFEN
     Dosage: 749 ?G, \DAY
     Route: 037
     Dates: end: 201607
  6. LIORESAL [Suspect]
     Active Substance: BACLOFEN
     Dosage: 540-570 ?G, \DAY
     Route: 037
     Dates: start: 20160810

REACTIONS (6)
  - Pneumonia [Unknown]
  - Drug withdrawal syndrome [Unknown]
  - Device battery issue [Recovered/Resolved]
  - Device alarm issue [Recovered/Resolved]
  - Hypertonia [Unknown]
  - Sepsis [Unknown]

NARRATIVE: CASE EVENT DATE: 20160625
